FAERS Safety Report 17200519 (Version 1)
Quarter: 2019Q4

REPORT INFORMATION
  Report Type: Spontaneous
  Country: AU (occurrence: AU)
  Receive Date: 20191226
  Receipt Date: 20191226
  Transmission Date: 20200122
  Serious: Yes (Death)
  Sender: FDA-Public Use
  Company Number: AU-MICRO LABS LIMITED-ML2019-03831

PATIENT

DRUGS (2)
  1. ATENOLOL. [Suspect]
     Active Substance: ATENOLOL
  2. TELMISARTAN. [Suspect]
     Active Substance: TELMISARTAN

REACTIONS (1)
  - Wrong patient received product [Fatal]
